FAERS Safety Report 6908214-3 (Version None)
Quarter: 2010Q3

REPORT INFORMATION
  Report Type: 
  Country: None (occurrence: None)
  Receive Date: 20100805
  Receipt Date: 20100726
  Transmission Date: 20110219
  Serious: Yes (Other)
  Sender: FDA-Public Use
  Company Number: DE-ROCHE-709169

PATIENT
  Sex: Male
  Weight: 81 kg

DRUGS (3)
  1. ROFERON-A [Suspect]
     Indication: RENAL CELL CARCINOMA
     Route: 058
     Dates: start: 20100429
  2. AVASTIN [Suspect]
     Indication: RENAL CELL CARCINOMA
     Route: 042
     Dates: start: 20100428
  3. ACETAMINOPHEN [Concomitant]
     Dosage: AS NEEDED
     Dates: start: 20100428

REACTIONS (2)
  - RETINAL EXUDATES [None]
  - RETINAL HAEMORRHAGE [None]
